FAERS Safety Report 8578735-9 (Version None)
Quarter: 2012Q3

REPORT INFORMATION
  Report Type: 
  Country: None (occurrence: None)
  Receive Date: 20120801
  Receipt Date: 20120801
  Transmission Date: 20120928
  Serious: Yes (Other)
  Sender: FDA-Public Use
  Company Number: None

PATIENT
  Age: 71 Year
  Sex: Female
  Weight: 88.4514 kg

DRUGS (2)
  1. LEVOTHYROXINE GENERIC OF SYNTHROID 25-75 MG [Suspect]
     Indication: HYPOTHYROIDISM
     Dosage: 25MG-75MG DAILY VIA TRICARE
  2. LEVOXYL [Suspect]
     Indication: HYPOTHYROIDISM
     Dosage: 25 MG-75MG DAILY TRICARE

REACTIONS (6)
  - VERTIGO [None]
  - BALANCE DISORDER [None]
  - ABNORMAL DREAMS [None]
  - HEADACHE [None]
  - TINNITUS [None]
  - SLEEP DISORDER [None]
